FAERS Safety Report 8008734-7 (Version None)
Quarter: 2011Q4

REPORT INFORMATION
  Report Type: 
  Country: None (occurrence: None)
  Receive Date: 20111227
  Receipt Date: 20111207
  Transmission Date: 20120403
  Serious: Yes (Hospitalization, Other)
  Sender: FDA-Public Use
  Company Number: US-ROCHE-791989

PATIENT
  Sex: Female
  Weight: 70.37 kg

DRUGS (2)
  1. ACCUTANE [Suspect]
     Indication: ACNE
     Dates: start: 19830101, end: 19840101
  2. ACCUTANE [Suspect]
     Route: 048
     Dates: start: 19841008, end: 19850130

REACTIONS (11)
  - EMOTIONAL DISTRESS [None]
  - ARTHRITIS [None]
  - OSTEOPOROSIS [None]
  - DEPRESSION [None]
  - CROHN'S DISEASE [None]
  - INFLAMMATORY BOWEL DISEASE [None]
  - OSTEOARTHRITIS [None]
  - COLITIS ULCERATIVE [None]
  - COLONIC FISTULA [None]
  - IRRITABLE BOWEL SYNDROME [None]
  - BLOOD TRIGLYCERIDES INCREASED [None]
